FAERS Safety Report 20198494 (Version 1)
Quarter: 2021Q4

REPORT INFORMATION
  Report Type: Spontaneous
  Country: US (occurrence: None)
  Receive Date: 20211216
  Receipt Date: 20211216
  Transmission Date: 20220303
  Serious: Yes (Disabling)
  Sender: FDA-Public Use
  Company Number: None

PATIENT
  Age: 48 Year
  Sex: Female
  Weight: 119.25 kg

DRUGS (22)
  1. SECRET ANTIPERSPIRANT/DEODORANT POWDER FRESH [Suspect]
     Active Substance: ALUMINUM ZIRCONIUM TRICHLOROHYDREX GLY
     Indication: Skin odour abnormal
     Route: 061
  2. CELLCEPT [Suspect]
     Active Substance: MYCOPHENOLATE MOFETIL
  3. DEVICE [Concomitant]
     Active Substance: DEVICE
  4. MELOXICAM [Concomitant]
     Active Substance: MELOXICAM
  5. SULFAMETHOXAZOLE\TRIMETHOPRIM [Concomitant]
     Active Substance: SULFAMETHOXAZOLE\TRIMETHOPRIM
  6. METOPROLOL TARTRATE [Concomitant]
     Active Substance: METOPROLOL TARTRATE
  7. MYCOPHENOLATE MOFETIL [Concomitant]
     Active Substance: MYCOPHENOLATE MOFETIL
  8. DULOXETINE [Concomitant]
     Active Substance: DULOXETINE
  9. SPIRIVA [Concomitant]
     Active Substance: TIOTROPIUM BROMIDE MONOHYDRATE
  10. DICLOFENAC SODIUM [Concomitant]
     Active Substance: DICLOFENAC SODIUM
  11. LIDOCAINE [Concomitant]
     Active Substance: LIDOCAINE
  12. ADVAIR DISKUS [Concomitant]
     Active Substance: FLUTICASONE PROPIONATE\SALMETEROL XINAFOATE
  13. VENTOLIN HFA [Concomitant]
     Active Substance: ALBUTEROL SULFATE
  14. ALBUTEROL [Concomitant]
     Active Substance: ALBUTEROL
  15. TRIAMCINOLONE ACETONIDE [Concomitant]
     Active Substance: TRIAMCINOLONE ACETONIDE
  16. HYDROCORTISONE [Concomitant]
     Active Substance: HYDROCORTISONE
  17. CLINDAMYCIN PHOSPHATE [Concomitant]
     Active Substance: CLINDAMYCIN PHOSPHATE
  18. BENZOYL PEROXIDE [Concomitant]
     Active Substance: BENZOYL PEROXIDE
  19. HYDRALAZINE [Concomitant]
     Active Substance: HYDRALAZINE HYDROCHLORIDE
  20. HYDROCHLOROTHIAZIDE\SPIRONOLACTONE [Concomitant]
     Active Substance: HYDROCHLOROTHIAZIDE\SPIRONOLACTONE
  21. SERTRALINE HYDROCHLORIDE [Concomitant]
     Active Substance: SERTRALINE HYDROCHLORIDE
  22. ESOMEPRAZOLE MAG DR [Concomitant]

REACTIONS (5)
  - Interstitial lung disease [None]
  - Rash [None]
  - Headache [None]
  - Hypertension [None]
  - Immune system disorder [None]
